FAERS Safety Report 18357715 (Version 11)
Quarter: 2023Q4

REPORT INFORMATION
  Report Type: Spontaneous
  Country: US (occurrence: US)
  Receive Date: 20201007
  Receipt Date: 20231205
  Transmission Date: 20240110
  Serious: Yes (Other)
  Sender: FDA-Public Use
  Company Number: US-SA-2020SA275470

PATIENT
  Age: 74 Year
  Sex: Female

DRUGS (1)
  1. DUPIXENT [Suspect]
     Active Substance: DUPILUMAB
     Indication: Dermatitis atopic
     Dosage: 300 MG, QOW
     Route: 058
     Dates: start: 202007

REACTIONS (9)
  - Cataract [Unknown]
  - Skin burning sensation [Unknown]
  - Ear disorder [Unknown]
  - Hypertension [Unknown]
  - Rash pruritic [Unknown]
  - Initial insomnia [Unknown]
  - Pruritus [Unknown]
  - Somnolence [Unknown]
  - Dermatitis atopic [Not Recovered/Not Resolved]

NARRATIVE: CASE EVENT DATE: 20200801
